FAERS Safety Report 8168487-9 (Version None)
Quarter: 2012Q1

REPORT INFORMATION
  Report Type: 
  Country: None (occurrence: None)
  Receive Date: 20120227
  Receipt Date: 20120227
  Transmission Date: 20120608
  Serious: Yes (Hospitalization)
  Sender: FDA-Public Use
  Company Number: None

PATIENT
  Sex: Female
  Weight: 157.8 kg

DRUGS (1)
  1. JANUVIA [Suspect]
     Indication: DIABETES MELLITUS
     Dosage: 100.0 MG
     Route: 048

REACTIONS (7)
  - INFLUENZA LIKE ILLNESS [None]
  - BLOOD GLUCOSE INCREASED [None]
  - DIABETES MELLITUS INADEQUATE CONTROL [None]
  - MENTAL STATUS CHANGES [None]
  - ABDOMINAL PAIN [None]
  - URINE KETONE BODY PRESENT [None]
  - PANCREATITIS ACUTE [None]
